FAERS Safety Report 5303226-8 (Version None)
Quarter: 2007Q2

REPORT INFORMATION
  Report Type: 
  Country: None (occurrence: None)
  Receive Date: 20070420
  Receipt Date: 20070413
  Transmission Date: 20071010
  Serious: Yes (Death, Hospitalization)
  Sender: FDA-Public Use
  Company Number: BE-ELI_LILLY_AND_COMPANY-BE200611003314

PATIENT
  Age: 57 Year
  Sex: Female
  Weight: 48 kg

DRUGS (6)
  1. GEMZAR [Suspect]
     Indication: LUNG ADENOCARCINOMA
     Dosage: 1200 MG/M2, UNK
     Route: 042
     Dates: start: 20050217, end: 20050401
  2. CISPLATIN [Concomitant]
     Indication: LUNG ADENOCARCINOMA
     Dosage: 80 MG/M2, OTHER
     Route: 065
     Dates: start: 20050217, end: 20050401
  3. EMCONCOR                                /BEL/ [Concomitant]
     Indication: HYPERTENSION
     Dosage: 2.5 MG, DAILY (1/D)
     Route: 048
  4. SERLAIN [Concomitant]
  5. LEXOTAN [Concomitant]
     Dosage: 6 MG, DAILY (1/D)
  6. FARLUTALE [Concomitant]
     Dosage: 1000 MG, DAILY (1/D)

REACTIONS (3)
  - ANAEMIA [None]
  - MALIGNANT NEOPLASM PROGRESSION [None]
  - PERIPHERAL EMBOLISM [None]
